FAERS Safety Report 9844092 (Version 2)
Quarter: 2014Q2

REPORT INFORMATION
  Report Type: Spontaneous
  Country: CA (occurrence: CA)
  Receive Date: 20140127
  Receipt Date: 20140522
  Transmission Date: 20141212
  Serious: Yes (Hospitalization)
  Sender: FDA-Public Use
  Company Number: CA-AMGEN-CANSP2014004565

PATIENT
  Age: 26 Year
  Sex: Female
  Weight: 71.66 kg

DRUGS (3)
  1. ENBREL [Suspect]
     Indication: ANKYLOSING SPONDYLITIS
     Dosage: 50 MG, QWK
     Route: 058
     Dates: start: 20091128
  2. EFEXOR [Concomitant]
     Dosage: 150 MG, UNK
  3. MATERNA                            /02266601/ [Concomitant]
     Indication: PREGNANCY
     Dosage: UNK
     Route: 048

REACTIONS (3)
  - Abortion spontaneous [Recovered/Resolved]
  - Pain [Recovered/Resolved]
  - Back pain [Unknown]
